FAERS Safety Report 5141302-3 (Version None)
Quarter: 2006Q4

REPORT INFORMATION
  Report Type: 
  Country: None (occurrence: None)
  Receive Date: 20061101
  Receipt Date: 20061018
  Transmission Date: 20070319
  Serious: Yes (Other)
  Sender: FDA-Public Use
  Company Number: KR-BAYER-200615091GDS

PATIENT
  Sex: Male

DRUGS (2)
  1. LEVITRA [Suspect]
     Indication: ERECTILE DYSFUNCTION
     Dosage: UNIT DOSE: 20 MG
     Route: 048
  2. VIAGRA [Concomitant]
     Indication: ERECTILE DYSFUNCTION
     Route: 048

REACTIONS (4)
  - ABDOMINAL PAIN UPPER [None]
  - HYPERHIDROSIS [None]
  - SYNCOPE [None]
  - URINARY INCONTINENCE [None]
